FAERS Safety Report 22008162 (Version 1)
Quarter: 2023Q1

REPORT INFORMATION
  Report Type: Report from Study
  Country: CO (occurrence: CO)
  Receive Date: 20230218
  Receipt Date: 20230218
  Transmission Date: 20230417
  Serious: Yes (Other)
  Sender: FDA-Public Use
  Company Number: CO-TAKEDA-2023TUS017849

PATIENT
  Age: 53 Year
  Sex: Female

DRUGS (1)
  1. HUMAN IMMUNOGLOBULIN G\HYALURONIDASE RECOMBINANT HUMAN [Suspect]
     Active Substance: HUMAN IMMUNOGLOBULIN G\HYALURONIDASE RECOMBINANT HUMAN
     Indication: Immunodeficiency
     Dosage: 5 GRAM
     Route: 058
     Dates: start: 20211116

REACTIONS (5)
  - Bradycardia [Unknown]
  - Vagus nerve disorder [Unknown]
  - Immunodeficiency [Unknown]
  - Gait disturbance [Unknown]
  - Tachycardia [Unknown]

NARRATIVE: CASE EVENT DATE: 20221201
